FAERS Safety Report 7164054-4 (Version None)
Quarter: 2010Q4

REPORT INFORMATION
  Report Type: 
  Country: None (occurrence: None)
  Receive Date: 20101215
  Receipt Date: 20101208
  Transmission Date: 20110411
  Serious: Yes (Other)
  Sender: FDA-Public Use
  Company Number: D0069666A

PATIENT
  Age: 42 Year
  Sex: Female

DRUGS (1)
  1. SUMATRIPTAN SUCCINATE [Suspect]
     Dosage: 100MG AS DIRECTED
     Route: 048
     Dates: start: 20000101

REACTIONS (2)
  - IRIS DISORDER [None]
  - MALIGNANT MELANOMA [None]
